FAERS Safety Report 8265129 (Version 4)
Quarter: 2013Q2

REPORT INFORMATION
  Report Type: Report from Study
  Country: JP (occurrence: JP)
  Receive Date: 20111128
  Receipt Date: 20130401
  Transmission Date: 20140414
  Serious: Yes (Other)
  Sender: FDA-Public Use
  Company Number: PHHY2009JP39278

PATIENT
  Age: 35 Year
  Sex: Male
  Weight: 60 kg

DRUGS (8)
  1. AMN107 [Suspect]
     Indication: CHRONIC MYELOID LEUKAEMIA
     Dosage: 800 MG/DAY
     Route: 048
     Dates: start: 20090521, end: 20090525
  2. AMN107 [Suspect]
     Dosage: 200 MG/DAY
     Route: 048
     Dates: start: 20090609, end: 20090617
  3. AMN107 [Suspect]
     Dosage: 400 MG, DAILY
     Route: 048
     Dates: start: 20090618, end: 20090624
  4. AMN107 [Suspect]
     Dosage: 600 MG/DAY
     Route: 048
     Dates: start: 20090625, end: 20090708
  5. AMN107 [Suspect]
     Dosage: 800 MG, DAILY
     Route: 048
     Dates: start: 20090709
  6. SELENICA-R [Concomitant]
     Dosage: 800 MG, UNK
     Route: 048
  7. IPD [Concomitant]
     Dosage: 200 MG, UNK
     Route: 048
  8. LANDSEN [Concomitant]
     Dosage: 0.5 MG, UNK
     Dates: start: 20101124

REACTIONS (6)
  - Eosinophil count increased [Recovered/Resolved]
  - Generalised erythema [Recovered/Resolved]
  - Blood glucose increased [Recovered/Resolved]
  - Blood bilirubin increased [Recovered/Resolved]
  - Blood bilirubin unconjugated increased [Recovered/Resolved]
  - Red blood cell count increased [Unknown]
